FAERS Safety Report 17121459 (Version 1)
Quarter: 2019Q4

REPORT INFORMATION
  Report Type: Spontaneous
  Country: US (occurrence: US)
  Receive Date: 20191205
  Receipt Date: 20191205
  Transmission Date: 20200122
  Serious: Yes (Other)
  Sender: FDA-Public Use
  Company Number: None

PATIENT
  Age: 51 Year
  Sex: Female
  Weight: 92.7 kg

DRUGS (16)
  1. DULOXETINE 60MG [Concomitant]
     Active Substance: DULOXETINE
     Dates: start: 20130423
  2. LANTUS 100UN/ML [Concomitant]
     Dates: start: 20080407
  3. VERAPAMIL ER 240MG [Concomitant]
     Dates: start: 20161220
  4. AMLODIPINE [Concomitant]
     Active Substance: AMLODIPINE BESYLATE
     Dates: start: 20171018
  5. SUMATRIPTAN 25MG [Concomitant]
     Dates: start: 20171006
  6. HYDROXYZINE 25MG [Concomitant]
     Dates: start: 20151007
  7. NOVOLOG 100UN/ML [Concomitant]
     Dates: start: 20080407
  8. PROPANOLOL 20MG [Concomitant]
     Dates: start: 20171006
  9. LOSARTAN 25MG [Concomitant]
     Active Substance: LOSARTAN
     Dates: start: 20170913
  10. LYRICA [Concomitant]
     Active Substance: PREGABALIN
     Dates: start: 20150406
  11. HYDROCHLOROTHIAZIDE 25MG [Concomitant]
     Active Substance: HYDROCHLOROTHIAZIDE
     Dates: start: 20170123
  12. METFORMIN 1GM [Concomitant]
     Dates: start: 20140403
  13. SYNTHROID 150MCG [Concomitant]
     Dates: start: 20160229
  14. ATORVASTATIN 80MG [Concomitant]
     Active Substance: ATORVASTATIN
     Dates: start: 20140827
  15. TRULICITY [Suspect]
     Active Substance: DULAGLUTIDE
     Indication: DIABETES MELLITUS
     Dosage: ?          OTHER FREQUENCY:WEEKLY;?
     Route: 058
     Dates: start: 20170220, end: 20181218
  16. WELLBUTRIN XL [Concomitant]
     Active Substance: BUPROPION HYDROCHLORIDE
     Dates: start: 20170515

REACTIONS (4)
  - Blood urea increased [None]
  - Blood creatinine increased [None]
  - Blood sodium decreased [None]
  - Diarrhoea [None]

NARRATIVE: CASE EVENT DATE: 20181206
